FAERS Safety Report 18925782 (Version 5)
Quarter: 2021Q3

REPORT INFORMATION
  Report Type: Report from Study
  Country: None (occurrence: IL)
  Receive Date: 20210222
  Receipt Date: 20210730
  Transmission Date: 20211014
  Serious: Yes (Hospitalization)
  Sender: FDA-Public Use
  Company Number: IL-ABBVIE-21K-082-3781380-00

PATIENT
  Age: 85 Year
  Sex: Female
  Weight: 66 kg

DRUGS (8)
  1. DUODOPA [Suspect]
     Active Substance: CARBIDOPA\LEVODOPA
     Indication: PARKINSON^S DISEASE
     Dosage: MD 16 ML , CD 3 ML/HR , ED 1.5 ML PER DOSE?TOTAL DAILY DOSE 64.0, TOTAL DAILY DOSE 68.5
     Route: 050
     Dates: start: 20210113, end: 2021
  2. OMEPRADEX [Concomitant]
     Active Substance: OMEPRAZOLE
     Indication: GASTROOESOPHAGEAL REFLUX DISEASE
     Dates: start: 2020
  3. CARDILOC [Concomitant]
     Active Substance: BISOPROLOL FUMARATE
     Indication: HYPERTENSION
     Dates: start: 2020
  4. DUODOPA [Suspect]
     Active Substance: CARBIDOPA\LEVODOPA
     Dosage: MORNING DOSAGE(ML) 17.0, CONTINUOUS DOSAGE (ML/H) 3.5, EXTRA DOSAGE (ML) 2.0.
     Route: 050
     Dates: start: 2021
  5. COVID?19 VACCINE NOS. [Suspect]
     Active Substance: COVID-19 VACCINE NOS
     Indication: COVID-19 IMMUNISATION
     Route: 030
     Dates: start: 202101, end: 202101
  6. SINEMET [Concomitant]
     Active Substance: CARBIDOPA\LEVODOPA
     Indication: PRODUCT USED FOR UNKNOWN INDICATION
     Dates: start: 20210113
  7. TRITACE [Concomitant]
     Active Substance: RAMIPRIL
     Indication: HYPERTENSION
     Dates: start: 2020
  8. VITAMIN D [Concomitant]
     Active Substance: VITAMIN D NOS
     Indication: VITAMIN D DEFICIENCY
     Dates: start: 2020

REACTIONS (13)
  - Device dislocation [Recovered/Resolved]
  - Parkinson^s disease [Unknown]
  - Confusional state [Recovering/Resolving]
  - Behaviour disorder [Unknown]
  - Malaise [Unknown]
  - On and off phenomenon [Unknown]
  - Device issue [Recovered/Resolved]
  - Sleep disorder [Unknown]
  - Unevaluable event [Unknown]
  - General physical health deterioration [Not Recovered/Not Resolved]
  - Balance disorder [Unknown]
  - Stoma site hypergranulation [Recovering/Resolving]
  - Gait disturbance [Recovering/Resolving]

NARRATIVE: CASE EVENT DATE: 202102
